FAERS Safety Report 6260585-X (Version None)
Quarter: 2009Q3

REPORT INFORMATION
  Report Type: 
  Country: None (occurrence: None)
  Receive Date: 20090706
  Receipt Date: 20090622
  Transmission Date: 20100115
  Serious: Yes (Other)
  Sender: FDA-Public Use
  Company Number: 2009EU002484

PATIENT
  Age: 36 Year
  Sex: Female

DRUGS (3)
  1. TACROLIMUS [Suspect]
     Indication: RENAL TRANSPLANT
     Dates: start: 20021101
  2. CORTICOSTEROID NOS (CORTICOSTEROID NOS) [Suspect]
     Indication: RENAL TRANSPLANT
     Dates: start: 20021101
  3. AZATHIOPRINE [Suspect]
     Indication: RENAL TRANSPLANT
     Dates: start: 20021101

REACTIONS (4)
  - HAEMODIALYSIS [None]
  - HYPERTENSION [None]
  - THROMBOTIC MICROANGIOPATHY [None]
  - TRANSPLANT FAILURE [None]
